FAERS Safety Report 23621009 (Version 4)
Quarter: 2024Q4

REPORT INFORMATION
  Report Type: Spontaneous
  Country: US (occurrence: US)
  Receive Date: 20240312
  Receipt Date: 20241219
  Transmission Date: 20250115
  Serious: Yes (Disabling)
  Sender: SANOFI AVENTIS
  Company Number: US-SA-SAC20240308001187

PATIENT
  Age: 68 Year
  Sex: Female

DRUGS (1)
  1. DUPIXENT [Suspect]
     Active Substance: DUPILUMAB
     Indication: Asthma
     Dosage: 300 MG, QOW
     Route: 058
     Dates: end: 20240529

REACTIONS (15)
  - Loss of personal independence in daily activities [Unknown]
  - Dyspnoea [Unknown]
  - Neck pain [Unknown]
  - Fatigue [Unknown]
  - Depression [Unknown]
  - Cough [Unknown]
  - Eye discharge [Recovering/Resolving]
  - Respiratory disorder [Recovering/Resolving]
  - Ocular hyperaemia [Recovering/Resolving]
  - Injection site reaction [Recovering/Resolving]
  - Arthralgia [Recovering/Resolving]
  - Dry eye [Unknown]
  - Injection site pain [Unknown]
  - Therapeutic response decreased [Unknown]
  - Drug ineffective [Unknown]

NARRATIVE: CASE EVENT DATE: 20240101
